FAERS Safety Report 23940315 (Version 1)
Quarter: 2024Q2

REPORT INFORMATION
  Report Type: Spontaneous
  Country: US (occurrence: US)
  Receive Date: 20240605
  Receipt Date: 20240605
  Transmission Date: 20240716
  Serious: Yes (Other)
  Sender: FDA-Public Use
  Company Number: US-AUROBINDO-AUR-APL-2024-026420

PATIENT
  Age: 59 Year
  Sex: Female

DRUGS (2)
  1. LAMOTRIGINE [Suspect]
     Active Substance: LAMOTRIGINE
     Indication: Schizoaffective disorder
     Dosage: UNK
     Route: 065
  2. LAMOTRIGINE [Suspect]
     Active Substance: LAMOTRIGINE
     Indication: Depression

REACTIONS (5)
  - Lymphadenopathy [Recovering/Resolving]
  - Weight decreased [Recovering/Resolving]
  - Lymphadenopathy mediastinal [Recovering/Resolving]
  - Pyrexia [Recovering/Resolving]
  - Night sweats [Recovering/Resolving]
